FAERS Safety Report 7816114-X (Version None)
Quarter: 2011Q4

REPORT INFORMATION
  Report Type: 
  Country: None (occurrence: None)
  Receive Date: 20111015
  Receipt Date: 20110724
  Transmission Date: 20120403
  Serious: Yes (Death)
  Sender: FDA-Public Use
  Company Number: DZ-ROCHE-1000143

PATIENT
  Sex: Female

DRUGS (5)
  1. HERCEPTIN [Suspect]
     Indication: BREAST CANCER METASTATIC
     Route: 042
     Dates: start: 20101124
  2. LETROZOLE [Suspect]
     Route: 048
     Dates: start: 20101124, end: 20101208
  3. METHYLPREDNISOLONE SODIUM SUCCINATE [Suspect]
     Indication: DYSPNOEA
     Route: 042
     Dates: start: 20101208
  4. ZOLEDRONIC ACID [Suspect]
     Indication: METASTASES TO BONE
     Dosage: PER CURE
     Route: 042
     Dates: start: 20101124
  5. MORPHINE SULFATE [Suspect]
     Indication: PAIN
     Route: 048
     Dates: start: 20101124, end: 20101208

REACTIONS (3)
  - RESPIRATORY FAILURE [None]
  - DYSPNOEA AT REST [None]
  - DISEASE PROGRESSION [None]
